FAERS Safety Report 26005972 (Version 1)
Quarter: 2025Q4

REPORT INFORMATION
  Report Type: Spontaneous
  Country: US (occurrence: None)
  Receive Date: 20251106
  Receipt Date: 20251106
  Transmission Date: 20260117
  Serious: Yes (Hospitalization)
  Sender: FDA-CTU
  Company Number: None

PATIENT
  Age: 42 Year
  Sex: Female
  Weight: 107 kg

DRUGS (2)
  1. XELODA [Suspect]
     Active Substance: CAPECITABINE
     Dates: end: 20230816
  2. ELOXATIN [Suspect]
     Active Substance: OXALIPLATIN
     Dates: end: 20230802

REACTIONS (17)
  - Pneumonia [None]
  - Dizziness [None]
  - Fatigue [None]
  - Abdominal pain [None]
  - Urine analysis abnormal [None]
  - Chest pain [None]
  - Dyspnoea [None]
  - Nausea [None]
  - Lymphadenopathy [None]
  - Gastrointestinal necrosis [None]
  - Fat necrosis [None]
  - Peritoneal disorder [None]
  - Hepatomegaly [None]
  - Spleen disorder [None]
  - Breast mass [None]
  - Lung consolidation [None]
  - Pneumonia aspiration [None]

NARRATIVE: CASE EVENT DATE: 20230817
